FAERS Safety Report 12932722 (Version 2)
Quarter: 2016Q4

REPORT INFORMATION
  Report Type: Report from Study
  Country: PL (occurrence: PL)
  Receive Date: 20161111
  Receipt Date: 20161118
  Transmission Date: 20170207
  Serious: Yes (Hospitalization)
  Sender: FDA-Public Use
  Company Number: PHHY2016PL152945

PATIENT
  Age: 58 Year
  Sex: Female
  Weight: 89 kg

DRUGS (1)
  1. TASIGNA [Suspect]
     Active Substance: NILOTINIB
     Indication: PRODUCT USED FOR UNKNOWN INDICATION
     Dosage: 400 MG, BID (2 X 400 MG)
     Route: 048
     Dates: start: 20111120

REACTIONS (4)
  - Dyspnoea [Unknown]
  - Asthma [Recovering/Resolving]
  - Platelet count increased [Unknown]
  - White blood cell count increased [Unknown]

NARRATIVE: CASE EVENT DATE: 20161017
